FAERS Safety Report 23203154 (Version 1)
Quarter: 2023Q4

REPORT INFORMATION
  Report Type: Spontaneous
  Country: US (occurrence: US)
  Receive Date: 20231120
  Receipt Date: 20231120
  Transmission Date: 20240110
  Serious: Yes (Other)
  Sender: FDA-Public Use
  Company Number: US-SANDOZ-SDZ2023US053823

PATIENT

DRUGS (2)
  1. IBRANCE [Suspect]
     Active Substance: PALBOCICLIB
     Indication: Product used for unknown indication
     Dosage: 75 MG, TAKE 1 TABLET DAILY DAYS 1-7 AND DAYS 15-21 OF 28 DAY CYCLE
     Route: 048
  2. OXAPROZIN [Suspect]
     Active Substance: OXAPROZIN
     Indication: Product used for unknown indication
     Route: 065

REACTIONS (7)
  - Anaphylactic reaction [Unknown]
  - Pharyngeal swelling [Unknown]
  - Nausea [Unknown]
  - Food allergy [Unknown]
  - Mouth swelling [Unknown]
  - Rash [Unknown]
  - Vomiting [Unknown]
